FAERS Safety Report 7865517-6 (Version None)
Quarter: 2011Q4

REPORT INFORMATION
  Report Type: 
  Country: None (occurrence: None)
  Receive Date: 20111028
  Receipt Date: 20110112
  Transmission Date: 20120403
  Serious: No
  Sender: FDA-Public Use
  Company Number: US-GLAXOSMITHKLINE-A0905424A

PATIENT
  Age: 59 Year
  Sex: Female

DRUGS (10)
  1. NEXIUM [Concomitant]
  2. PROZAC [Concomitant]
  3. ASPIRIN [Concomitant]
  4. ADVAIR DISKUS 100/50 [Suspect]
     Indication: CHRONIC OBSTRUCTIVE PULMONARY DISEASE
     Dosage: 1PUFF TWICE PER DAY
     Route: 055
     Dates: start: 20100901
  5. LORTAB [Concomitant]
  6. NEURONTIN [Concomitant]
  7. XANAX [Concomitant]
  8. AMITRIPTYLINE HCL [Concomitant]
  9. LISINOPRIL [Concomitant]
  10. WATER PILL [Concomitant]

REACTIONS (1)
  - GLOSSITIS [None]
